FAERS Safety Report 18071197 (Version 3)
Quarter: 2025Q3

REPORT INFORMATION
  Report Type: Other
  Country: CA (occurrence: CA)
  Receive Date: 20200727
  Receipt Date: 20250704
  Transmission Date: 20251020
  Serious: Yes (Other)
  Sender: APOTEX
  Company Number: CA-APOTEX-2020AP014059

PATIENT
  Age: 33 Year
  Sex: Male
  Weight: 130 kg

DRUGS (16)
  1. CEFUROXIME [Suspect]
     Active Substance: CEFUROXIME
     Indication: Wound infection
     Dosage: 500 MILLIGRAM, BID
     Route: 065
  2. INFLIXIMAB [Suspect]
     Active Substance: INFLIXIMAB
     Indication: Crohn^s disease
     Route: 042
  3. INFLIXIMAB [Suspect]
     Active Substance: INFLIXIMAB
     Indication: Colitis ulcerative
     Route: 042
  4. INFLECTRA [Suspect]
     Active Substance: INFLIXIMAB-DYYB
     Indication: Colitis ulcerative
     Route: 042
  5. INFLECTRA [Suspect]
     Active Substance: INFLIXIMAB-DYYB
     Indication: Crohn^s disease
     Route: 042
  6. INFLECTRA [Suspect]
     Active Substance: INFLIXIMAB-DYYB
     Route: 042
  7. INFLECTRA [Suspect]
     Active Substance: INFLIXIMAB-DYYB
     Route: 042
  8. INFLECTRA [Suspect]
     Active Substance: INFLIXIMAB-DYYB
     Route: 042
  9. INFLECTRA [Suspect]
     Active Substance: INFLIXIMAB-DYYB
     Route: 042
  10. INFLECTRA [Suspect]
     Active Substance: INFLIXIMAB-DYYB
     Route: 042
  11. CIPROFLOXACIN [Concomitant]
     Active Substance: CIPROFLOXACIN
     Indication: Wound infection
     Route: 065
  12. CLINDAMYCIN [Concomitant]
     Active Substance: CLINDAMYCIN
     Indication: Wound infection
     Route: 065
  13. CLOBETASOL [Concomitant]
     Active Substance: CLOBETASOL
     Indication: Pyoderma gangrenosum
     Route: 065
  14. FLOVENT [Concomitant]
     Active Substance: FLUTICASONE PROPIONATE
     Indication: Pyoderma gangrenosum
     Route: 065
  15. METHOTREXATE [Concomitant]
     Active Substance: METHOTREXATE
     Indication: Colitis
     Dosage: UNK, Q.WK.
     Route: 065
  16. PREDNISONE [Concomitant]
     Active Substance: PREDNISONE
     Indication: Product used for unknown indication
     Dosage: 70 MILLIGRAM, QD
     Route: 065

REACTIONS (7)
  - Wound secretion [Not Recovered/Not Resolved]
  - Wound infection [Not Recovered/Not Resolved]
  - Blood pressure fluctuation [Not Recovered/Not Resolved]
  - Drug interaction [Not Recovered/Not Resolved]
  - Skin ulcer [Not Recovered/Not Resolved]
  - Drug ineffective [Not Recovered/Not Resolved]
  - Therapeutic response shortened [Not Recovered/Not Resolved]
